FAERS Safety Report 20474967 (Version 1)
Quarter: 2022Q1

REPORT INFORMATION
  Report Type: Spontaneous
  Country: US (occurrence: US)
  Receive Date: 20220215
  Receipt Date: 20220215
  Transmission Date: 20220423
  Serious: No
  Sender: FDA-Public Use
  Company Number: VAL-2021-0108

PATIENT

DRUGS (4)
  1. LASIX [Suspect]
     Active Substance: FUROSEMIDE
     Indication: Unevaluable event
     Dosage: UNK
     Route: 065
     Dates: start: 202101
  2. LIPITOR [Suspect]
     Active Substance: ATORVASTATIN CALCIUM
     Indication: Cardiac disorder
     Dosage: UNK
     Route: 065
     Dates: start: 2011
  3. ALDACTONE [Suspect]
     Active Substance: SPIRONOLACTONE
     Indication: Unevaluable event
     Dosage: UNK
     Route: 065
     Dates: start: 202101
  4. FUROSEMIDE [Concomitant]
     Active Substance: FUROSEMIDE
     Indication: Blood pressure management
     Dosage: 40 MG, UNK
     Dates: start: 20210120

REACTIONS (1)
  - Dizziness [Not Recovered/Not Resolved]

NARRATIVE: CASE EVENT DATE: 20210101
